FAERS Safety Report 5914172-0 (Version None)
Quarter: 2008Q4

REPORT INFORMATION
  Report Type: 
  Country: None (occurrence: None)
  Receive Date: 20081009
  Receipt Date: 20080929
  Transmission Date: 20090506
  Serious: Yes (Hospitalization, Disabling)
  Sender: FDA-Public Use
  Company Number: US-PFIZER INC-2008082154

PATIENT
  Sex: Male
  Weight: 104.8 kg

DRUGS (2)
  1. LIPITOR [Suspect]
     Dates: start: 20040101, end: 20080929
  2. ALL OTHER THERAPEUTIC PRODUCTS [Concomitant]

REACTIONS (3)
  - BACK PAIN [None]
  - FALL [None]
  - MOBILITY DECREASED [None]
